FAERS Safety Report 7309410-6 (Version None)
Quarter: 2011Q1

REPORT INFORMATION
  Report Type: 
  Country: None (occurrence: None)
  Receive Date: 20110211
  Receipt Date: 20110207
  Transmission Date: 20110831
  Serious: Yes (Hospitalization)
  Sender: FDA-Public Use
  Company Number: SP03450

PATIENT
  Age: 86 Year
  Sex: Female
  Weight: 65.7716 kg

DRUGS (7)
  1. XIFAXAN [Suspect]
     Indication: HEPATIC ENCEPHALOPATHY
     Dosage: 1100 MG (550 MG, 2 IN  1 D), ORAL
     Route: 048
     Dates: start: 20101001, end: 20101101
  2. AMLODIPINE [Concomitant]
  3. SPIRONOLACTONE [Concomitant]
  4. PRILOSEC [Concomitant]
  5. HYDRALAZINE [Concomitant]
  6. IRON [Concomitant]
  7. MIRTAZAPINE [Concomitant]

REACTIONS (4)
  - PNEUMONIA [None]
  - PULMONARY OEDEMA [None]
  - DIARRHOEA [None]
  - THROMBOSIS [None]
